FAERS Safety Report 8589116-6 (Version None)
Quarter: 2012Q3

REPORT INFORMATION
  Report Type: 
  Country: None (occurrence: None)
  Receive Date: 20120813
  Receipt Date: 20120803
  Transmission Date: 20120928
  Serious: Yes (Hospitalization)
  Sender: FDA-Public Use
  Company Number: US-ASTELLAS-2012US006796

PATIENT
  Sex: Female

DRUGS (3)
  1. ERLOTINIB HYDROCHLORIDE [Suspect]
     Indication: NON-SMALL CELL LUNG CANCER
     Dosage: 150 MG, UID/QD
     Route: 048
     Dates: start: 20120501
  2. OMEPRAZOLE [Concomitant]
     Indication: PRODUCT USED FOR UNKNOWN INDICATION
     Dosage: UNK
     Route: 065
  3. LOMOTIL [Concomitant]
     Indication: DIARRHOEA
     Dosage: UNK
     Route: 048

REACTIONS (5)
  - RASH GENERALISED [None]
  - THROAT TIGHTNESS [None]
  - MUSCLE SPASMS [None]
  - DIARRHOEA [None]
  - ASTHENIA [None]
